FAERS Safety Report 9515200 (Version 1)
Quarter: 2013Q1

REPORT INFORMATION
  Report Type: Spontaneous
  Country: US (occurrence: None)
  Receive Date: 20130305
  Receipt Date: 20130305
  Transmission Date: 20140127
  Serious: Yes (Other)
  Sender: FDA-Public Use
  Company Number: 163-21880-12102930

PATIENT
  Age: 63 Year
  Sex: Female

DRUGS (8)
  1. REVLIMID [Suspect]
     Indication: PLASMA CELL MYELOMA
     Dosage: 25 MG, 1 IN 1 D, PO
     Route: 048
     Dates: start: 200904
  2. LYRICA (PREGABALIN) (UNKNOWN) [Concomitant]
  3. METFORMIN (METFORMIN) (UNKNOWN) [Concomitant]
  4. LIPITOR (ATORVASTATIN) (UNKNOWN) [Concomitant]
  5. ACYCLOVIR (ACICLOVIR) (UNKNOWN) [Concomitant]
  6. TOPROL XL (METOPROLOL SUCCINATE) (UNKNOWN) [Concomitant]
  7. ASPIRIN USA (ACETYLSALICYLIC ACID) [Concomitant]
  8. TRAZODONE (TRAZODONE) (UNKNOWN) (TRAZODONE) [Concomitant]

REACTIONS (2)
  - Red blood cell count decreased [None]
  - Cystitis [None]
